FAERS Safety Report 8598554-7 (Version None)
Quarter: 2012Q3

REPORT INFORMATION
  Report Type: 
  Country: None (occurrence: None)
  Receive Date: 20120816
  Receipt Date: 20120808
  Transmission Date: 20120928
  Serious: Yes (Other)
  Sender: FDA-Public Use
  Company Number: BR-ROCHE-1099598

PATIENT
  Sex: Female
  Weight: 59 kg

DRUGS (3)
  1. ROFERON-A [Suspect]
     Indication: HEPATITIS C
     Route: 042
  2. MIOSAN [Concomitant]
  3. RIBAVIRIN [Concomitant]
     Indication: HEPATITIS

REACTIONS (8)
  - PYREXIA [None]
  - CHILLS [None]
  - HYPOTENSION [None]
  - DECREASED APPETITE [None]
  - WEIGHT DECREASED [None]
  - NAUSEA [None]
  - DEPRESSION [None]
  - HEPATITIS C [None]
